FAERS Safety Report 4684809-5 (Version None)
Quarter: 2005Q2

REPORT INFORMATION
  Report Type: 
  Country: None (occurrence: None)
  Receive Date: 20050606
  Receipt Date: 20050329
  Transmission Date: 20051028
  Serious: No
  Sender: FDA-Public Use
  Company Number: USA050291079

PATIENT
  Age: 65 Year
  Sex: Female
  Weight: 51 kg

DRUGS (6)
  1. ALIMTA [Suspect]
     Indication: NON-SMALL CELL LUNG CANCER STAGE IV
     Dosage: 760 MG
     Dates: start: 20050207
  2. VITAMIN B-12 [Concomitant]
  3. FOLIC ACID [Concomitant]
  4. DECADRON [Concomitant]
  5. ANZEMET (DOLASETRON MESILATE) [Concomitant]
  6. ATIVAN [Concomitant]

REACTIONS (1)
  - EPISTAXIS [None]
